FAERS Safety Report 19950197 (Version 3)
Quarter: 2022Q2

REPORT INFORMATION
  Report Type: Report from Study
  Country: US (occurrence: None)
  Receive Date: 20211013
  Receipt Date: 20220412
  Transmission Date: 20220721
  Serious: Yes (Death, Life-Threatening, Other)
  Sender: FDA-Public Use
  Company Number: US-ROCHE-2929442

PATIENT
  Age: 70 Year
  Sex: Female
  Weight: 84.6 kg

DRUGS (3)
  1. OBINUTUZUMAB [Suspect]
     Active Substance: OBINUTUZUMAB
     Indication: Chronic lymphocytic leukaemia
     Dosage: 100 MG IV ON DAY 1 CYCLE 1, 900 MG IV ON DAY 2, CYCLE 1, 1000 MG IV ON DAY 8, CYCLE 1, 1000 MG IV ON
     Route: 042
     Dates: start: 20201006, end: 20210224
  2. VENETOCLAX [Suspect]
     Active Substance: VENETOCLAX
     Indication: Chronic lymphocytic leukaemia
     Dosage: 20 MG PO QD DAYS 1-7 CYCLE 3, 50 MG PO QD DAYS 8-14 CYCLE 3, 100 MG PO QD DAYS 15-21 CYCLE 3, 200 MG
     Route: 048
     Dates: start: 20201006, end: 20210916
  3. IBRUTINIB [Suspect]
     Active Substance: IBRUTINIB
     Indication: Chronic lymphocytic leukaemia
     Dosage: 420 MG PO QD ON DAYS 1-28, CYCLES 1-19.?ON 16/SEP/2021, SHE RECEIVED MOST RECENT DOSE OF IBRUTINIB P
     Route: 048
     Dates: start: 20201006, end: 20210916

REACTIONS (4)
  - COVID-19 [Fatal]
  - Diarrhoea [Recovered/Resolved]
  - Lymphocyte count decreased [Recovered/Resolved]
  - Acute respiratory distress syndrome [Recovered/Resolved]

NARRATIVE: CASE EVENT DATE: 20210921
